FAERS Safety Report 5532398-5 (Version None)
Quarter: 2007Q4

REPORT INFORMATION
  Report Type: 
  Country: None (occurrence: None)
  Receive Date: 20071203
  Receipt Date: 20071121
  Transmission Date: 20080405
  Serious: Yes (Hospitalization)
  Sender: FDA-Public Use
  Company Number: US-AMGEN-STX251592

PATIENT
  Sex: Female

DRUGS (3)
  1. ENBREL [Suspect]
     Indication: RHEUMATOID ARTHRITIS
     Route: 058
     Dates: start: 19990101
  2. ENBREL [Suspect]
     Indication: JUVENILE ARTHRITIS
  3. METHOTREXATE [Concomitant]
     Route: 048
     Dates: start: 19980101

REACTIONS (5)
  - DEVICE FAILURE [None]
  - HYPOAESTHESIA [None]
  - JOINT RANGE OF MOTION DECREASED [None]
  - RHEUMATOID ARTHRITIS [None]
  - SPONDYLITIS [None]
